FAERS Safety Report 5327430-8 (Version None)
Quarter: 2007Q2

REPORT INFORMATION
  Report Type: 
  Country: None (occurrence: None)
  Receive Date: 20070511
  Receipt Date: 20070501
  Transmission Date: 20071010
  Serious: Yes (Hospitalization)
  Sender: FDA-Public Use
  Company Number: RENA-12186

PATIENT
  Age: 77 Year
  Sex: Male

DRUGS (2)
  1. RENAGEL [Suspect]
     Indication: HYPERPHOSPHATAEMIA
     Dosage: 0.8 G TID PO
     Route: 048
     Dates: start: 20070405
  2. REPLIVA (ELEMENTAL IRON/SUCCINIC ACID/VITAMIN C/ VITAMIN B12/FOLIC ACI [Concomitant]

REACTIONS (1)
  - HAEMOGLOBIN DECREASED [None]
